FAERS Safety Report 25467597 (Version 3)
Quarter: 2025Q3

REPORT INFORMATION
  Report Type: Spontaneous
  Country: JP (occurrence: JP)
  Receive Date: 20250623
  Receipt Date: 20250708
  Transmission Date: 20251021
  Serious: Yes (Other)
  Sender: JOHNSON AND JOHNSON
  Company Number: JP-JNJFOC-20250623826

PATIENT
  Age: 8 Decade
  Sex: Male
  Weight: 90 kg

DRUGS (19)
  1. OPSUMIT [Suspect]
     Active Substance: MACITENTAN
     Indication: Pulmonary arterial hypertension
     Route: 048
  2. OPSUMIT [Suspect]
     Active Substance: MACITENTAN
     Route: 048
  3. UPTRAVI [Suspect]
     Active Substance: SELEXIPAG
     Indication: Pulmonary arterial hypertension
     Route: 048
  4. UPTRAVI [Suspect]
     Active Substance: SELEXIPAG
     Route: 048
  5. UPTRAVI [Suspect]
     Active Substance: SELEXIPAG
     Route: 048
  6. TADALAFIL [Suspect]
     Active Substance: TADALAFIL
     Indication: Pulmonary arterial hypertension
     Route: 048
  7. AZOSEMIDE [Concomitant]
     Active Substance: AZOSEMIDE
     Indication: Product used for unknown indication
     Route: 048
  8. AZOSEMIDE [Concomitant]
     Active Substance: AZOSEMIDE
     Route: 048
  9. AZOSEMIDE [Concomitant]
     Active Substance: AZOSEMIDE
     Route: 048
  10. BISOPROLOL [Concomitant]
     Active Substance: BISOPROLOL
     Indication: Product used for unknown indication
     Route: 048
  11. AMLODIPINE [Concomitant]
     Active Substance: AMLODIPINE BESYLATE
     Indication: Product used for unknown indication
     Dosage: PERORAL MEDICINE
     Route: 048
  12. TREPROSTINIL [Concomitant]
     Active Substance: TREPROSTINIL
     Indication: Pulmonary arterial hypertension
     Dosage: INHALATANT
     Route: 048
  13. ADEMPAS [Concomitant]
     Active Substance: RIOCIGUAT
     Indication: Product used for unknown indication
     Route: 065
  14. EMPAGLIFLOZIN [Concomitant]
     Active Substance: EMPAGLIFLOZIN
     Indication: Product used for unknown indication
     Route: 065
  15. TOLVAPTAN [Concomitant]
     Active Substance: TOLVAPTAN
     Indication: Product used for unknown indication
     Route: 065
  16. TOLVAPTAN [Concomitant]
     Active Substance: TOLVAPTAN
     Route: 065
  17. FUROSEMIDE [Concomitant]
     Active Substance: FUROSEMIDE
     Indication: Product used for unknown indication
  18. FUROSEMIDE [Concomitant]
     Active Substance: FUROSEMIDE
  19. FUROSEMIDE [Concomitant]
     Active Substance: FUROSEMIDE

REACTIONS (7)
  - PO2 decreased [Not Recovered/Not Resolved]
  - Pulmonary congestion [Recovering/Resolving]
  - Blood pressure decreased [Unknown]
  - Cough [Unknown]
  - Left ventricular dysfunction [Unknown]
  - N-terminal prohormone brain natriuretic peptide increased [Recovering/Resolving]
  - Off label use [Unknown]
